FAERS Safety Report 16372045 (Version 2)
Quarter: 2019Q2

REPORT INFORMATION
  Report Type: Spontaneous
  Country: CN (occurrence: CN)
  Receive Date: 20190530
  Receipt Date: 20190605
  Transmission Date: 20190711
  Serious: Yes (Other)
  Sender: FDA-Public Use
  Company Number: CN-ASTRAZENECA-2019SE79177

PATIENT
  Sex: Female

DRUGS (2)
  1. CONMANA [Suspect]
     Active Substance: ICOTINIB
     Route: 065
  2. TAGRISSO [Suspect]
     Active Substance: OSIMERTINIB
     Indication: EGFR GENE MUTATION
     Route: 048
     Dates: start: 20190423, end: 201905

REACTIONS (2)
  - Metastasis [Unknown]
  - Malignant neoplasm progression [Unknown]
